FAERS Safety Report 5857187-3 (Version None)
Quarter: 2008Q3

REPORT INFORMATION
  Report Type: 
  Country: None (occurrence: None)
  Receive Date: 20080825
  Receipt Date: 20080818
  Transmission Date: 20090109
  Serious: Yes (Other)
  Sender: FDA-Public Use
  Company Number: PHBS2008IT05449

PATIENT
  Age: 68 Year
  Sex: Female

DRUGS (2)
  1. ZOLEDRONIC ACID [Suspect]
     Indication: BREAST CANCER
     Dosage: 4 MG, QMO
  2. CALCIUM [Concomitant]

REACTIONS (4)
  - OSTEOMYELITIS [None]
  - OSTEONECROSIS [None]
  - PAIN [None]
  - TOOTH EXTRACTION [None]
